FAERS Safety Report 9507682 (Version 1)
Quarter: 2013Q3

REPORT INFORMATION
  Report Type: Spontaneous
  Country: FR (occurrence: None)
  Receive Date: 20130905
  Receipt Date: 20130905
  Transmission Date: 20140515
  Serious: Yes (Hospitalization)
  Sender: FDA-Public Use
  Company Number: SYM-2013-10173

PATIENT
  Age: 63 Year
  Sex: Male

DRUGS (9)
  1. FLAGYL [Suspect]
     Indication: INTERVERTEBRAL DISCITIS
     Dosage: 500 MG, 4 IN 1 D
     Dates: start: 20130604, end: 20130702
  2. FOSFOCINA [Suspect]
     Indication: INTERVERTEBRAL DISCITIS
     Dosage: 4 GM, 3 IN 1 D
     Dates: start: 20130604, end: 20130702
  3. CEFOTAXIME [Suspect]
     Indication: INTERVERTEBRAL DISCITIS
     Dosage: 4 GM, 4 IN 1 D
     Dates: start: 20130604, end: 20130702
  4. TOPALGIC (TRAMADOL HYDROCHLORIDE) (TRAMADOL HYDROCHLORIDE) [Concomitant]
  5. DAFALGAN (PARACETAMOL) (PARACETAMOL) [Concomitant]
  6. SOLUPRED (PREDNISOLONE) (PREDNISOLONE) [Concomitant]
  7. MYOLASTAN (TETRAZEPAM) (TETRAZEPAM) [Concomitant]
  8. PARIET (RABEPRAZOLE SODIUM) (RABEPRAZOLE SODIUM) [Concomitant]
  9. COLCHICINE OPOCALCIUM (COLCHICINE) (COLCHICINE) [Concomitant]

REACTIONS (6)
  - Neutropenia [None]
  - Thrombocytopenia [None]
  - Hypokalaemia [None]
  - Dermatitis contact [None]
  - Toxic skin eruption [None]
  - Skin lesion [None]
